FAERS Safety Report 11215803 (Version 1)
Quarter: 2015Q2

REPORT INFORMATION
  Report Type: Spontaneous
  Country: US (occurrence: US)
  Receive Date: 20150624
  Receipt Date: 20150624
  Transmission Date: 20150821
  Serious: Yes (Hospitalization)
  Sender: FDA-Public Use
  Company Number: US-EUSA PHARMA-2014-US-008650

PATIENT
  Age: 14 Year
  Sex: Female

DRUGS (8)
  1. ERWINAZE [Suspect]
     Active Substance: ASPARAGINASE ERWINIA CHRYSANTHEMI
     Dosage: 39000 IU, SINGLE
     Dates: start: 20140602, end: 20140602
  2. ERWINAZE [Suspect]
     Active Substance: ASPARAGINASE ERWINIA CHRYSANTHEMI
     Dosage: 39000 IU, SINGLE
     Dates: start: 20140609, end: 20140609
  3. ERWINAZE [Suspect]
     Active Substance: ASPARAGINASE ERWINIA CHRYSANTHEMI
     Dosage: 39000 IU, SINGLE
     Dates: start: 20140530, end: 20140530
  4. ERWINAZE [Suspect]
     Active Substance: ASPARAGINASE ERWINIA CHRYSANTHEMI
     Dosage: 39000 IU, SINGLE
     Dates: start: 20140606, end: 20140606
  5. ERWINAZE [Suspect]
     Active Substance: ASPARAGINASE ERWINIA CHRYSANTHEMI
     Dosage: 39000 IU, SINGLE
     Dates: start: 20140630, end: 20140630
  6. ERWINAZE [Suspect]
     Active Substance: ASPARAGINASE ERWINIA CHRYSANTHEMI
     Dosage: 39000 IU, SINGLE
     Dates: start: 20140702, end: 20140702
  7. ERWINAZE [Suspect]
     Active Substance: ASPARAGINASE ERWINIA CHRYSANTHEMI
     Dosage: 39000 IU, SINGLE
     Dates: start: 20140611, end: 20140611
  8. ERWINAZE [Suspect]
     Active Substance: ASPARAGINASE ERWINIA CHRYSANTHEMI
     Dosage: 39000 IU, SINGLE
     Dates: start: 20140604, end: 20140604

REACTIONS (2)
  - Encephalopathy [Recovered/Resolved]
  - Hyperammonaemia [Recovered/Resolved]

NARRATIVE: CASE EVENT DATE: 20140704
